FAERS Safety Report 15428014 (Version 1)
Quarter: 2018Q3

REPORT INFORMATION
  Report Type: Spontaneous
  Country: US (occurrence: US)
  Receive Date: 20180926
  Receipt Date: 20180926
  Transmission Date: 20181010
  Serious: No
  Sender: FDA-Public Use
  Company Number: US-PRINSTON PHARMACEUTICAL INC.-2018PRN00770

PATIENT
  Sex: Female
  Weight: 77.1 kg

DRUGS (5)
  1. ASPIRIN. [Concomitant]
     Active Substance: ASPIRIN
  2. BLOOD  THINNER [Concomitant]
     Active Substance: UNSPECIFIED INGREDIENT
  3. VALSARTAN. [Suspect]
     Active Substance: VALSARTAN
     Indication: HYPERTENSION
     Dosage: 320 MG, 1X/DAY
     Dates: start: 2018, end: 201808
  4. LIPITOR [Concomitant]
     Active Substance: ATORVASTATIN CALCIUM
  5. LASIX [Concomitant]
     Active Substance: FUROSEMIDE

REACTIONS (1)
  - Genital cyst [Not Recovered/Not Resolved]

NARRATIVE: CASE EVENT DATE: 2018
